FAERS Safety Report 6739762-7 (Version None)
Quarter: 2010Q2

REPORT INFORMATION
  Report Type: 
  Country: None (occurrence: None)
  Receive Date: 20100525
  Receipt Date: 20100519
  Transmission Date: 20101027
  Serious: Yes (Hospitalization)
  Sender: FDA-Public Use
  Company Number: US-BRISTOL-MYERS SQUIBB COMPANY-15112311

PATIENT
  Age: 69 Year
  Sex: Male
  Weight: 147 kg

DRUGS (18)
  1. COUMADIN [Suspect]
  2. VELCADE [Concomitant]
     Indication: MULTIPLE MYELOMA
     Dosage: CYCLE 1,4,8 AND 11 EVERY 21 DAYS
     Route: 042
     Dates: start: 20091218, end: 20100409
  3. MELPHALAN HYDROCHLORIDE [Concomitant]
     Indication: MULTIPLE MYELOMA
     Dosage: TABLET, DAYS 1-4 EVERY OTHER CYCLE,
     Route: 048
     Dates: start: 20091218, end: 20100402
  4. PREDNISONE [Concomitant]
     Indication: MULTIPLE MYELOMA
     Dosage: DAYS 1-4, LAST RECEIVED CYCLE 5, DAY 11.
     Route: 048
     Dates: start: 20091218, end: 20100402
  5. ADVAIR DISKUS 100/50 [Concomitant]
  6. ALPHAGAN [Concomitant]
  7. ALBUTEROL [Concomitant]
  8. ASPIRIN [Concomitant]
  9. BENICAR [Concomitant]
  10. COMBIVENT [Concomitant]
  11. LASIX [Concomitant]
  12. MAGNESIUM OXIDE [Concomitant]
  13. POTASSIUM CHLORIDE [Concomitant]
  14. PRAVACHOL [Concomitant]
  15. TOPROL-XL [Concomitant]
  16. XALATAN [Concomitant]
  17. LEVOFLOXACIN [Concomitant]
  18. DIAZEPAM [Concomitant]

REACTIONS (1)
  - PANCYTOPENIA [None]
